FAERS Safety Report 8641252 (Version 3)
Quarter: 2012Q4

REPORT INFORMATION
  Report Type: 
  Country: BR (occurrence: BR)
  Receive Date: 20120628
  Receipt Date: 20120907
  Transmission Date: 20130627
  Serious: Yes (Other)
  Sender: FDA-Public Use
  Company Number: BR-ROCHE-1080844

PATIENT
  Age: 89 Year
  Sex: Female

DRUGS (1)
  1. LUCENTIS [Suspect]
     Indication: PRODUCT USED FOR UNKNOWN INDICATION
     Dosage: strength: 10 mg/ml
     Route: 050
     Dates: start: 20120613

REACTIONS (2)
  - Vitreous disorder [Recovering/Resolving]
  - Eye inflammation [Recovering/Resolving]
